FAERS Safety Report 17828024 (Version 1)
Quarter: 2020Q2

REPORT INFORMATION
  Report Type: Spontaneous
  Country: US (occurrence: US)
  Receive Date: 20200526
  Receipt Date: 20200526
  Transmission Date: 20200714
  Serious: Yes (Other)
  Sender: FDA-Public Use
  Company Number: None

PATIENT
  Age: 40 Year
  Sex: Male
  Weight: 61.2 kg

DRUGS (1)
  1. FINASTERIDE 1MG TAB GENERIC FOR: PROPECIA 1MG TAB MERC [Suspect]
     Active Substance: FINASTERIDE
     Indication: ALOPECIA
     Dosage: ?          QUANTITY:1 TABLET(S);?
     Route: 048
     Dates: start: 20181123, end: 20200208

REACTIONS (3)
  - Libido decreased [None]
  - Erectile dysfunction [None]
  - Libido disorder [None]

NARRATIVE: CASE EVENT DATE: 20200208
